FAERS Safety Report 15098088 (Version 3)
Quarter: 2018Q3

REPORT INFORMATION
  Report Type: Spontaneous
  Country: US (occurrence: US)
  Receive Date: 20180702
  Receipt Date: 20180921
  Transmission Date: 20181010
  Serious: No
  Sender: FDA-Public Use
  Company Number: US-IGSA-SR10005384

PATIENT
  Age: 34 Year
  Sex: Female

DRUGS (1)
  1. HUMAN NORMAL IMMUNOGLOBULIN (IV) [Suspect]
     Active Substance: HUMAN IMMUNOGLOBULIN G
     Indication: SCLEROEDEMA
     Dosage: UNK UNK, Q.4WK.
     Route: 042

REACTIONS (1)
  - Dyshidrotic eczema [Unknown]
